FAERS Safety Report 18522573 (Version 1)
Quarter: 2020Q4

REPORT INFORMATION
  Report Type: Report from Study
  Country: None (occurrence: US)
  Receive Date: 20201119
  Receipt Date: 20201119
  Transmission Date: 20210114
  Serious: Yes (Other)
  Sender: FDA-Public Use
  Company Number: US-ABBVIE-19K-163-2864740-00

PATIENT
  Age: 58 Year
  Sex: Female

DRUGS (1)
  1. HUMIRA [Suspect]
     Active Substance: ADALIMUMAB
     Indication: RHEUMATOID ARTHRITIS
     Route: 058

REACTIONS (11)
  - Musculoskeletal disorder [Unknown]
  - Rheumatoid arthritis [Unknown]
  - Arthropathy [Unknown]
  - Tendon pain [Unknown]
  - Epilepsy [Unknown]
  - Cyst [Unknown]
  - Hernia [Unknown]
  - Vision blurred [Unknown]
  - Osteoporosis [Unknown]
  - Gait inability [Unknown]
  - Asthma [Unknown]

NARRATIVE: CASE EVENT DATE: 202007
